FAERS Safety Report 17609532 (Version 2)
Quarter: 2020Q3

REPORT INFORMATION
  Report Type: Spontaneous
  Country: US (occurrence: US)
  Receive Date: 20200401
  Receipt Date: 20200701
  Transmission Date: 20201102
  Serious: Yes (Other)
  Sender: FDA-Public Use
  Company Number: US-PFIZER INC-2020133513

PATIENT
  Age: 45 Year
  Sex: Female

DRUGS (1)
  1. XELJANZ [Suspect]
     Active Substance: TOFACITINIB CITRATE
     Indication: RHEUMATOID ARTHRITIS
     Dosage: 5 MG, 2X/DAY
     Route: 048
     Dates: start: 20190127

REACTIONS (5)
  - Alopecia [Recovering/Resolving]
  - Streptococcus test positive [Unknown]
  - Diarrhoea [Recovered/Resolved]
  - Skin ulcer [Unknown]
  - Musculoskeletal stiffness [Unknown]
